FAERS Safety Report 10261376 (Version 7)
Quarter: 2014Q3

REPORT INFORMATION
  Report Type: Spontaneous
  Country: US (occurrence: US)
  Receive Date: 20140626
  Receipt Date: 20140905
  Transmission Date: 20150326
  Serious: Yes (Other)
  Sender: FDA-Public Use
  Company Number: US-JNJFOC-20140200676

PATIENT
  Sex: Male

DRUGS (1)
  1. RISPERDAL [Suspect]
     Active Substance: RISPERIDONE
     Indication: BIPOLAR DISORDER
     Route: 048
     Dates: start: 2003, end: 2004

REACTIONS (7)
  - Galactorrhoea [Unknown]
  - Type 2 diabetes mellitus [Unknown]
  - Obesity [Recovering/Resolving]
  - Gynaecomastia [Unknown]
  - Hepatic steatosis [Unknown]
  - Hormone level abnormal [Unknown]
  - Emotional distress [Unknown]
